FAERS Safety Report 8193659-7 (Version None)
Quarter: 2012Q1

REPORT INFORMATION
  Report Type: 
  Country: None (occurrence: None)
  Receive Date: 20120308
  Receipt Date: 20120228
  Transmission Date: 20120608
  Serious: Yes (Other)
  Sender: FDA-Public Use
  Company Number: JP-JNJFOC-20111107436

PATIENT
  Sex: Female
  Weight: 55 kg

DRUGS (18)
  1. REMICADE [Suspect]
     Route: 042
     Dates: start: 20100218
  2. REMICADE [Suspect]
     Route: 042
     Dates: start: 20101007
  3. REMICADE [Suspect]
     Route: 042
     Dates: start: 20100812
  4. REMICADE [Suspect]
     Route: 042
     Dates: start: 20110512
  5. REMICADE [Suspect]
     Route: 042
     Dates: start: 20091009
  6. REMICADE [Suspect]
     Route: 042
     Dates: start: 20101202
  7. ISONIAZID [Concomitant]
     Indication: ANTIBIOTIC PROPHYLAXIS
     Route: 048
     Dates: start: 20090918, end: 20100925
  8. REMICADE [Suspect]
     Route: 042
     Dates: start: 20110317
  9. REMICADE [Suspect]
     Route: 042
     Dates: start: 20110707
  10. REMICADE [Suspect]
     Route: 042
     Dates: start: 20091105
  11. RINDERON-A [Concomitant]
     Dates: start: 20090917, end: 20100925
  12. REMICADE [Suspect]
     Indication: BEHCET'S SYNDROME
     Route: 042
     Dates: start: 20091224
  13. REMICADE [Suspect]
     Route: 042
     Dates: start: 20090925
  14. REMICADE [Suspect]
     Route: 042
     Dates: start: 20110127
  15. REMICADE [Suspect]
     Route: 042
     Dates: start: 20100610
  16. REMICADE [Suspect]
     Route: 042
     Dates: start: 20100408
  17. REMICADE [Suspect]
     Route: 042
     Dates: start: 20110901
  18. RINDERON-A [Concomitant]
     Indication: BEHCET'S SYNDROME
     Dates: start: 20100926, end: 20110925

REACTIONS (1)
  - CATARACT [None]
